FAERS Safety Report 6493039-6 (Version None)
Quarter: 2009Q4

REPORT INFORMATION
  Report Type: 
  Country: None (occurrence: None)
  Receive Date: 20091214
  Receipt Date: 20091204
  Transmission Date: 20100525
  Serious: Yes (Hospitalization)
  Sender: FDA-Public Use
  Company Number: GXKR2009GB13142

PATIENT
  Age: 33 Year
  Sex: Male

DRUGS (2)
  1. RISPERIDONE (NGX) [Suspect]
     Indication: SCHIZOPHRENIA
     Dosage: 2 MG/DAY
     Route: 065
  2. SERTRALINE HYDROCHLORIDE (NGX) [Suspect]
     Indication: SCHIZOPHRENIA
     Dosage: 50 MG/DAY
     Route: 065

REACTIONS (6)
  - COUGH [None]
  - DYSPNOEA [None]
  - EOSINOPHILIC PNEUMONIA [None]
  - PNEUMOTHORAX [None]
  - PULMONARY FIBROSIS [None]
  - RESPIRATORY FAILURE [None]
